FAERS Safety Report 5802879-5 (Version None)
Quarter: 2008Q3

REPORT INFORMATION
  Report Type: 
  Country: None (occurrence: None)
  Receive Date: 20080703
  Receipt Date: 20080617
  Transmission Date: 20090109
  Serious: Yes (Death, Other)
  Sender: FDA-Public Use
  Company Number: A-US2007-14335

PATIENT
  Age: 45 Year
  Sex: Female
  Weight: 54.9 kg

DRUGS (5)
  1. VENTAVIS [Suspect]
     Indication: PULMONARY HYPERTENSION
     Dosage: 5 UG 6-9X A DAY, RESPIRATORY
     Route: 055
     Dates: start: 20061215
  2. PROTONIX [Concomitant]
  3. HYDROCHLOROTHIAZIDE [Concomitant]
  4. DIFLUCAN [Concomitant]
  5. ACETAMINOPHEN [Concomitant]

REACTIONS (7)
  - CHEST DISCOMFORT [None]
  - DEPRESSED MOOD [None]
  - FATIGUE [None]
  - HEADACHE [None]
  - LIVER TRANSPLANT [None]
  - NAUSEA [None]
  - PAIN IN EXTREMITY [None]
